FAERS Safety Report 18372331 (Version 5)
Quarter: 2021Q4

REPORT INFORMATION
  Report Type: Spontaneous
  Country: US (occurrence: US)
  Receive Date: 20201012
  Receipt Date: 20211019
  Transmission Date: 20220304
  Serious: No
  Sender: FDA-Public Use
  Company Number: US-PFIZER INC-2020391046

PATIENT
  Age: 69 Year
  Sex: Female
  Weight: 45.81 kg

DRUGS (4)
  1. IBRANCE [Suspect]
     Active Substance: PALBOCICLIB
     Indication: Neoplasm malignant
     Dosage: 125 MG, CYCLIC (DAILY FOR 21 DAYS ON AND 7 DAYS OFF)
     Route: 048
     Dates: start: 202009, end: 2021
  2. LETROZOLE [Suspect]
     Active Substance: LETROZOLE
     Indication: Neoplasm malignant
     Dosage: 2.5 MG, DAILY
     Route: 048
     Dates: start: 202009
  3. AMLODIPINE [Concomitant]
     Active Substance: AMLODIPINE BESYLATE
     Indication: Hypertension
     Dosage: 5 MG, DAILY
     Dates: start: 2019
  4. LEVOTHYROXINE SODIUM [Concomitant]
     Active Substance: LEVOTHYROXINE SODIUM
     Indication: Thyroid disorder
     Dosage: 50 UG, DAILY
     Dates: start: 2019

REACTIONS (9)
  - Neoplasm progression [Unknown]
  - Joint swelling [Unknown]
  - Peripheral swelling [Unknown]
  - Insomnia [Not Recovered/Not Resolved]
  - Formication [Unknown]
  - Pruritus [Not Recovered/Not Resolved]
  - Condition aggravated [Not Recovered/Not Resolved]
  - Diarrhoea [Unknown]
  - Faeces soft [Unknown]

NARRATIVE: CASE EVENT DATE: 20201001
